FAERS Safety Report 16442011 (Version 1)
Quarter: 2019Q2

REPORT INFORMATION
  Report Type: Spontaneous
  Country: US (occurrence: US)
  Receive Date: 20190617
  Receipt Date: 20190617
  Transmission Date: 20190711
  Serious: No
  Sender: FDA-Public Use
  Company Number: US-US WORLDMEDS, LLC-USW201811-001701

PATIENT
  Age: 43 Year
  Sex: Male

DRUGS (1)
  1. APOKYN [Suspect]
     Active Substance: APOMORPHINE HYDROCHLORIDE
     Dates: start: 201809

REACTIONS (2)
  - Hot flush [Unknown]
  - Somnolence [Unknown]

NARRATIVE: CASE EVENT DATE: 20181109
